FAERS Safety Report 18436989 (Version 3)
Quarter: 2024Q4

REPORT INFORMATION
  Report Type: Spontaneous
  Country: US (occurrence: US)
  Receive Date: 20201028
  Receipt Date: 20241126
  Transmission Date: 20250115
  Serious: No
  Sender: PFIZER
  Company Number: US-PFIZER INC-2020417691

PATIENT
  Age: 73 Year
  Sex: Female
  Weight: 59.864 kg

DRUGS (1)
  1. PREMPRO [Suspect]
     Active Substance: ESTROGENS, CONJUGATED\MEDROXYPROGESTERONE ACETATE
     Indication: Hormone therapy
     Dosage: UNK, 1X/DAY (0.3/1.5MG TABLET ONCE A DAY)

REACTIONS (2)
  - Oropharyngeal discomfort [Unknown]
  - Malaise [Unknown]
